FAERS Safety Report 20799811 (Version 6)
Quarter: 2025Q3

REPORT INFORMATION
  Report Type: Spontaneous
  Country: EU (occurrence: EU)
  Receive Date: 20220509
  Receipt Date: 20250808
  Transmission Date: 20251021
  Serious: Yes (Hospitalization, Disabling, Other)
  Sender: AUROBINDO
  Company Number: EU-AUROBINDO-AUR-APL-2022-009436

PATIENT
  Age: 54 Year
  Sex: Female

DRUGS (2)
  1. METFORMIN HYDROCHLORIDE [Suspect]
     Active Substance: METFORMIN HYDROCHLORIDE
     Indication: Type 2 diabetes mellitus
     Dosage: 1000 MILLIGRAM, TWO TIMES A DAY(2000 MILLIGRAM, QD )
     Route: 002
  2. METFORMIN HYDROCHLORIDE [Suspect]
     Active Substance: METFORMIN HYDROCHLORIDE
     Dosage: 1000 MILLIGRAM, ONCE A DAY
     Route: 065

REACTIONS (12)
  - Lactic acidosis [Recovered/Resolved]
  - Blood lactic acid increased [Recovered/Resolved]
  - Anion gap [Recovered/Resolved]
  - Acute kidney injury [Recovering/Resolving]
  - Hypoxia [Not Recovered/Not Resolved]
  - Oliguria [Recovering/Resolving]
  - Fatigue [Recovering/Resolving]
  - Dehydration [Not Recovered/Not Resolved]
  - Metabolic acidosis [Recovering/Resolving]
  - Anion gap increased [Recovering/Resolving]
  - Polyuria [Recovering/Resolving]
  - Hypoperfusion [Not Recovered/Not Resolved]

NARRATIVE: CASE EVENT DATE: 20220101
